FAERS Safety Report 5725337-5 (Version None)
Quarter: 2008Q2

REPORT INFORMATION
  Report Type: 
  Country: None (occurrence: None)
  Receive Date: 20080501
  Receipt Date: 20080422
  Transmission Date: 20081010
  Serious: Yes (Other)
  Sender: FDA-Public Use
  Company Number: US-PFIZER INC-2008035198

PATIENT
  Sex: Female
  Weight: 70 kg

DRUGS (5)
  1. LIPITOR [Suspect]
     Indication: BLOOD CHOLESTEROL INCREASED
  2. DICYCLOMINE [Concomitant]
  3. PREVACID [Concomitant]
  4. TOPROL-XL [Concomitant]
  5. ASPIRIN [Concomitant]
     Dosage: DAILY DOSE:81MG

REACTIONS (2)
  - CAROTID ARTERIOSCLEROSIS [None]
  - DYSGEUSIA [None]
